FAERS Safety Report 21703253 (Version 1)
Quarter: 2022Q4

REPORT INFORMATION
  Report Type: Report from Study
  Country: PR (occurrence: PR)
  Receive Date: 20221209
  Receipt Date: 20221209
  Transmission Date: 20230113
  Serious: No
  Sender: FDA-Public Use
  Company Number: PR-ABBVIE-4189894

PATIENT
  Sex: Female
  Weight: 60.327 kg

DRUGS (4)
  1. HUMIRA [Suspect]
     Active Substance: ADALIMUMAB
     Indication: Rheumatoid arthritis
     Dosage: 40MG/0.8ML
     Route: 058
     Dates: start: 20080330
  2. ELASOMERAN [Concomitant]
     Active Substance: ELASOMERAN
     Indication: COVID-19
     Dosage: 2ND DOSE/1 IN ONCE
     Route: 030
     Dates: start: 20210423, end: 20210423
  3. ELASOMERAN [Concomitant]
     Active Substance: ELASOMERAN
     Indication: COVID-19
     Dosage: 1ST DOSE/1 IN ONCE
     Route: 030
     Dates: start: 20210326, end: 20210326
  4. ELASOMERAN [Concomitant]
     Active Substance: ELASOMERAN
     Indication: COVID-19
     Dosage: 3RD DOSE/1 IN ONCE
     Route: 030
     Dates: start: 20210505, end: 20210505

REACTIONS (2)
  - Arthralgia [Not Recovered/Not Resolved]
  - Gastrointestinal mucosal disorder [Not Recovered/Not Resolved]

NARRATIVE: CASE EVENT DATE: 20220101
